FAERS Safety Report 7646312-X (Version None)
Quarter: 2011Q3

REPORT INFORMATION
  Report Type: 
  Country: None (occurrence: None)
  Receive Date: 20110801
  Receipt Date: 20110726
  Transmission Date: 20111222
  Serious: Yes (Other)
  Sender: FDA-Public Use
  Company Number: FR-SHIRE-SPV1-2011-01007

PATIENT
  Age: 50 Year
  Sex: Male

DRUGS (1)
  1. ANAGRELIDE HYDROCHLORIDE [Suspect]
     Indication: ESSENTIAL THROMBOCYTHAEMIA
     Dosage: 2.5 MG, 1X/DAY:QD
     Route: 048

REACTIONS (3)
  - AORTIC VALVE INCOMPETENCE [None]
  - CARDIAC DISORDER [None]
  - PLATELET COUNT INCREASED [None]
